FAERS Safety Report 9358773 (Version 1)
Quarter: 2013Q2

REPORT INFORMATION
  Report Type: Spontaneous
  Country: CA (occurrence: CA)
  Receive Date: 20130620
  Receipt Date: 20130620
  Transmission Date: 20140414
  Serious: Yes (Hospitalization)
  Sender: FDA-Public Use
  Company Number: CA-AMGEN-CANSP2013042932

PATIENT
  Age: 64 Year
  Sex: Female

DRUGS (8)
  1. NEUPOGEN [Suspect]
     Indication: PRODUCT USED FOR UNKNOWN INDICATION
     Dosage: 1.6ML/480MCG, UNK
     Route: 065
     Dates: start: 20130529, end: 201306
  2. ASA [Concomitant]
     Dosage: 81 MG, QD
  3. ELMIRON [Concomitant]
     Dosage: 100 MG, TID
  4. CYMBALTA [Concomitant]
     Dosage: 30 MG, QD
  5. PANTOLOC                           /01263204/ [Concomitant]
     Dosage: 40 MG, QD
  6. DOMPERIDONE [Concomitant]
     Dosage: 10 MG, QID
  7. SYNTHROID [Concomitant]
     Dosage: 0.175 MG, UNK
  8. OXYCODONE [Concomitant]
     Dosage: UNK

REACTIONS (7)
  - Nausea [Not Recovered/Not Resolved]
  - Constipation [Not Recovered/Not Resolved]
  - Migraine [Not Recovered/Not Resolved]
  - Abdominal pain upper [Not Recovered/Not Resolved]
  - Rash generalised [Not Recovered/Not Resolved]
  - Diarrhoea [Not Recovered/Not Resolved]
  - Bone pain [Not Recovered/Not Resolved]
